FAERS Safety Report 22518034 (Version 1)
Quarter: 2023Q2

REPORT INFORMATION
  Report Type: Spontaneous
  Country: GB (occurrence: GB)
  Receive Date: 20230605
  Receipt Date: 20230605
  Transmission Date: 20230722
  Serious: Yes (Other)
  Sender: FDA-Public Use
  Company Number: GB-IPSEN Group, Research and Development-2023-12550

PATIENT
  Age: 28 Year
  Sex: Female
  Weight: 50.8 kg

DRUGS (1)
  1. CABOMETYX [Suspect]
     Active Substance: CABOZANTINIB S-MALATE
     Indication: Fibrosarcoma metastatic
     Dosage: 40 MG QD
     Route: 065

REACTIONS (1)
  - Neuropathy peripheral [Unknown]
